FAERS Safety Report 7815463-9 (Version None)
Quarter: 2011Q4

REPORT INFORMATION
  Report Type: 
  Country: None (occurrence: None)
  Receive Date: 20111014
  Receipt Date: 20111004
  Transmission Date: 20120403
  Serious: Yes (Other)
  Sender: FDA-Public Use
  Company Number: PHHY2011IT88836

PATIENT
  Sex: Male

DRUGS (1)
  1. CERTICAN [Suspect]
     Indication: TRANSPLANT
     Dosage: 1.75 MG MORNING AND 2 MG EVENING
     Route: 048

REACTIONS (6)
  - INCORRECT DOSE ADMINISTERED [None]
  - ROAD TRAFFIC ACCIDENT [None]
  - MOUTH ULCERATION [None]
  - UPPER LIMB FRACTURE [None]
  - ORAL DISCOMFORT [None]
  - ORAL PAIN [None]
